FAERS Safety Report 13418607 (Version 1)
Quarter: 2017Q2

REPORT INFORMATION
  Report Type: Spontaneous
  Country: CA (occurrence: CA)
  Receive Date: 20170406
  Receipt Date: 20170406
  Transmission Date: 20170830
  Serious: Yes (Other)
  Sender: FDA-Public Use
  Company Number: PHHY2017CA045940

PATIENT
  Age: 60 Year
  Sex: Female

DRUGS (3)
  1. TOBRAMYCIN SANDOZ [Suspect]
     Active Substance: TOBRAMYCIN
     Indication: BRONCHIECTASIS
     Dosage: 80 MG, BID
     Route: 055
     Dates: start: 20160831, end: 20161118
  2. SALBUTAMOL TEVA [Suspect]
     Active Substance: ALBUTEROL
     Indication: BRONCHIECTASIS
     Dosage: 2.5 ML, BID
     Route: 055
     Dates: start: 20160831, end: 20161218
  3. LEVAQUIN [Concomitant]
     Active Substance: LEVOFLOXACIN
     Indication: BRONCHIECTASIS
     Route: 065
     Dates: start: 20161002, end: 20161015

REACTIONS (14)
  - Weight decreased [Not Recovered/Not Resolved]
  - Swelling [Not Recovered/Not Resolved]
  - Weight increased [Unknown]
  - Erythema [Recovered/Resolved]
  - Abdominal distension [Not Recovered/Not Resolved]
  - Arthritis [Unknown]
  - Visual impairment [Recovered/Resolved]
  - Decreased appetite [Unknown]
  - Palpitations [Not Recovered/Not Resolved]
  - Muscle atrophy [Unknown]
  - Mouth swelling [Recovered/Resolved]
  - Dyspnoea [Unknown]
  - Increased appetite [Recovering/Resolving]
  - Dysphagia [Not Recovered/Not Resolved]

NARRATIVE: CASE EVENT DATE: 201608
